FAERS Safety Report 6511281-2 (Version None)
Quarter: 2009Q4

REPORT INFORMATION
  Report Type: 
  Country: None (occurrence: None)
  Receive Date: 20091222
  Receipt Date: 20090424
  Transmission Date: 20100525
  Serious: No
  Sender: FDA-Public Use
  Company Number: US-ASTRAZENECA-2009UW07347

PATIENT
  Age: 80 Year
  Sex: Female
  Weight: 146 kg

DRUGS (6)
  1. CRESTOR [Suspect]
     Indication: BLOOD CHOLESTEROL INCREASED
     Route: 048
     Dates: start: 20090301
  2. RHINOCORT [Concomitant]
     Indication: ASTHMA
  3. FLOVENT [Concomitant]
     Indication: ASTHMA
  4. MARPLAN [Concomitant]
     Indication: DEPRESSION
  5. LEVOTHYROXINE SODIUM [Concomitant]
     Indication: HYPOTHYROIDISM
  6. SINGULAIR [Concomitant]
     Indication: ASTHMA

REACTIONS (5)
  - ABDOMINAL DISCOMFORT [None]
  - ABDOMINAL PAIN [None]
  - DIARRHOEA [None]
  - MUSCLE SPASMS [None]
  - PAIN IN EXTREMITY [None]
